FAERS Safety Report 9095536 (Version 6)
Quarter: 2013Q3

REPORT INFORMATION
  Report Type: Report from Study
  Country: CA (occurrence: CA)
  Receive Date: 20130220
  Receipt Date: 20130709
  Transmission Date: 20140515
  Serious: Yes (Hospitalization, Other)
  Sender: FDA-Public Use
  Company Number: PHHY2012CA039590

PATIENT
  Age: 56 Year
  Sex: Female

DRUGS (3)
  1. ZOMETA [Suspect]
     Indication: METASTASES TO BONE
     Dosage: 4 MG, EVERY 4 WEEKS
     Route: 042
     Dates: start: 20120405, end: 20130605
  2. LYRICA [Suspect]
  3. HYDROMORPHONE [Concomitant]

REACTIONS (24)
  - Upper limb fracture [Unknown]
  - Pathological fracture [Unknown]
  - Haemoglobin decreased [Unknown]
  - Terminal state [Unknown]
  - Malignant neoplasm progression [Unknown]
  - Heart rate increased [Unknown]
  - Pallor [Unknown]
  - Memory impairment [Unknown]
  - Dehydration [Unknown]
  - Vein disorder [Unknown]
  - Underweight [Unknown]
  - Bone pain [Not Recovered/Not Resolved]
  - Oedema peripheral [Unknown]
  - Dizziness [Unknown]
  - Hypotension [Unknown]
  - Injection site haemorrhage [Unknown]
  - Platelet count decreased [Unknown]
  - Myalgia [Unknown]
  - Vomiting [Unknown]
  - Pain [Unknown]
  - Body temperature increased [Unknown]
  - Somnolence [Unknown]
  - Confusional state [Unknown]
  - Injection site discomfort [Unknown]
